FAERS Safety Report 8445000-X (Version None)
Quarter: 2012Q2

REPORT INFORMATION
  Report Type: 
  Country: None (occurrence: None)
  Receive Date: 20120618
  Receipt Date: 20120611
  Transmission Date: 20120825
  Serious: Yes (Hospitalization, Other)
  Sender: FDA-Public Use
  Company Number: US-ROCHE-1056730

PATIENT
  Sex: Male
  Weight: 86.26 kg

DRUGS (2)
  1. ACCUTANE [Suspect]
     Indication: ACNE
     Route: 065
     Dates: start: 19990801, end: 20000101
  2. ACCUTANE [Suspect]
     Route: 065
     Dates: start: 20030101

REACTIONS (3)
  - INFLAMMATORY BOWEL DISEASE [None]
  - DEEP VEIN THROMBOSIS [None]
  - COLITIS ULCERATIVE [None]
